FAERS Safety Report 17274109 (Version 1)
Quarter: 2020Q1

REPORT INFORMATION
  Report Type: Spontaneous
  Country: US (occurrence: US)
  Receive Date: 20200115
  Receipt Date: 20200115
  Transmission Date: 20200409
  Serious: Yes (Hospitalization)
  Sender: FDA-Public Use
  Company Number: None

PATIENT
  Age: 86 Year
  Sex: Female

DRUGS (14)
  1. OMEPRAZOLE CAP 20 MG [Concomitant]
  2. VENTOLIN HFA AER [Concomitant]
  3. ATORVASTATIN TAB 80 MG [Concomitant]
  4. TRAMADOL HCL TAB 50 MG [Concomitant]
  5. FEROSUL TAB 325 MG [Concomitant]
  6. FUROSEMIDE TAB 40 MG [Concomitant]
  7. FLUOXETINE CAP 40 MG [Concomitant]
  8. FAMOTIDINE TAB 20 MG [Concomitant]
  9. ALPRAZOLAM TAB 2 MG [Concomitant]
  10. LISINOPRIL TAB 20 MG [Concomitant]
  11. NEFEDIPINE TAB 30 MG ER [Concomitant]
  12. AMLODIPINE TAB 10 MG [Concomitant]
  13. ENBREL [Suspect]
     Active Substance: ETANERCEPT
     Indication: RHEUMATOID ARTHRITIS
     Dosage: ?          OTHER FREQUENCY:WEEKLY;?
     Route: 058
     Dates: start: 20180912
  14. METOPRLOL TAR TAB 25 MG [Concomitant]

REACTIONS (1)
  - Fall [None]
